FAERS Safety Report 6932514-4 (Version None)
Quarter: 2010Q3

REPORT INFORMATION
  Report Type: 
  Country: None (occurrence: None)
  Receive Date: 20100819
  Receipt Date: 20100810
  Transmission Date: 20110219
  Serious: Yes (Hospitalization, Other)
  Sender: FDA-Public Use
  Company Number: US-ASTRAZENECA-2010SE37508

PATIENT
  Age: 14 Year
  Sex: Male

DRUGS (3)
  1. SEROQUEL [Suspect]
     Route: 048
  2. STRATTERA [Suspect]
     Indication: ATTENTION DEFICIT/HYPERACTIVITY DISORDER
     Route: 048
     Dates: start: 20040201
  3. TENEX [Concomitant]

REACTIONS (5)
  - BRAIN ABSCESS [None]
  - PYREXIA [None]
  - SEROTONIN SYNDROME [None]
  - SINUSITIS [None]
  - STAPHYLOCOCCAL INFECTION [None]
